FAERS Safety Report 9816976 (Version 7)
Quarter: 2014Q3

REPORT INFORMATION
  Report Type: Report from Study
  Country: JP (occurrence: JP)
  Receive Date: 20140114
  Receipt Date: 20140812
  Transmission Date: 20150326
  Serious: Yes (Hospitalization)
  Sender: FDA-Public Use
  Company Number: JP-GLAXOSMITHKLINE-B0958352A

PATIENT
  Age: 51 Year
  Sex: Female

DRUGS (1)
  1. GSK1120212 [Suspect]
     Active Substance: TRAMETINIB
     Indication: CHOLANGIOCARCINOMA
     Dosage: 2MG PER DAY
     Route: 048
     Dates: start: 20131216, end: 20140101

REACTIONS (3)
  - Platelet count decreased [Recovered/Resolved]
  - Pyelonephritis [Recovered/Resolved]
  - Hepatic function abnormal [Recovered/Resolved]

NARRATIVE: CASE EVENT DATE: 20140106
